FAERS Safety Report 7752138-9 (Version None)
Quarter: 2011Q3

REPORT INFORMATION
  Report Type: 
  Country: None (occurrence: None)
  Receive Date: 20110915
  Receipt Date: 20110909
  Transmission Date: 20111222
  Serious: No
  Sender: FDA-Public Use
  Company Number: US-PFIZER INC-2011214276

PATIENT
  Sex: Female
  Weight: 58.957 kg

DRUGS (8)
  1. BENZONATATE [Concomitant]
     Dosage: 100 MG, UNK
  2. VITAMIN D [Concomitant]
     Dosage: 1000, UNK
  3. CEFPODOXIME [Concomitant]
     Dosage: 100 MG, UNK
  4. CALCIUM WITH VITAMIN D [Concomitant]
     Dosage: UNK
  5. AZITHROMYCIN [Concomitant]
     Dosage: 250 MG, UNK
  6. SUTENT [Suspect]
     Dosage: 50 MG, 1X/DAY (28 DAYS ON, 14 DAYS OFF)
     Route: 048
  7. NEURONTIN [Concomitant]
     Dosage: 100 MG, UNK
  8. OXYCONTIN [Concomitant]
     Dosage: 10 MG, UNK

REACTIONS (5)
  - DYSPNOEA [None]
  - HYPERTENSION [None]
  - LUNG DISORDER [None]
  - COUGH [None]
  - MIGRAINE [None]
